FAERS Safety Report 5122749-8 (Version None)
Quarter: 2006Q4

REPORT INFORMATION
  Report Type: 
  Country: None (occurrence: None)
  Receive Date: 20061005
  Receipt Date: 20060919
  Transmission Date: 20070319
  Serious: Yes (Hospitalization)
  Sender: FDA-Public Use
  Company Number: US200608006010

PATIENT
  Age: 69 Year
  Sex: Female

DRUGS (6)
  1. FORTEO [Suspect]
     Indication: OSTEOPOROSIS
     Dates: start: 20060530, end: 20060101
  2. FORTEO [Concomitant]
  3. ............... [Concomitant]
  4. XANAX [Concomitant]
  5. HYDROMORPHONE HCL [Concomitant]
  6. PREDNISONE TAB [Concomitant]

REACTIONS (2)
  - BACK PAIN [None]
  - PHARMACEUTICAL PRODUCT COMPLAINT [None]
